FAERS Safety Report 5720912-6 (Version None)
Quarter: 2008Q2

REPORT INFORMATION
  Report Type: 
  Country: None (occurrence: None)
  Receive Date: 20080429
  Receipt Date: 20080424
  Transmission Date: 20081010
  Serious: Yes (Disabling)
  Sender: FDA-Public Use
  Company Number: AU-AVENTIS-200811833EU

PATIENT
  Age: 64 Year
  Sex: Male
  Weight: 92 kg

DRUGS (1)
  1. NATRILIX-SR [Suspect]
     Indication: ESSENTIAL HYPERTENSION
     Dosage: DOSE: UNK
     Route: 048
     Dates: start: 20080208, end: 20080213

REACTIONS (8)
  - DIZZINESS [None]
  - FREQUENT BOWEL MOVEMENTS [None]
  - HEADACHE [None]
  - NEUTROPHIL COUNT INCREASED [None]
  - ORTHOSTATIC HYPOTENSION [None]
  - PROTEINURIA [None]
  - RENAL IMPAIRMENT [None]
  - VOMITING [None]
